FAERS Safety Report 5777989-1 (Version None)
Quarter: 2008Q2

REPORT INFORMATION
  Report Type: 
  Country: None (occurrence: None)
  Receive Date: 20080617
  Receipt Date: 20080610
  Transmission Date: 20081010
  Serious: Yes (Other)
  Sender: FDA-Public Use
  Company Number: 2008SP011504

PATIENT
  Sex: Female

DRUGS (1)
  1. CLARITIN-D 24 HOUR (LORATADINE 10MG/PSEUDEPHEDRINE 240MG) (10 MG) SNIF [Suspect]
     Indication: COUGH
     Dosage: 10 MG; ONCE
     Dates: start: 20080603

REACTIONS (3)
  - NAUSEA [None]
  - PALPITATIONS [None]
  - THROAT TIGHTNESS [None]
